FAERS Safety Report 12284266 (Version 1)
Quarter: 2016Q2

REPORT INFORMATION
  Report Type: Spontaneous
  Country: US (occurrence: US)
  Receive Date: 20160420
  Receipt Date: 20160420
  Transmission Date: 20160815
  Serious: Yes (Other)
  Sender: FDA-Public Use
  Company Number: US-BRISTOL-MYERS SQUIBB COMPANY-BMS-2016-027292

PATIENT
  Sex: Male

DRUGS (1)
  1. COUMADIN [Suspect]
     Active Substance: WARFARIN SODIUM
     Indication: PROTEIN C DEFICIENCY
     Route: 048

REACTIONS (5)
  - Neuropathy peripheral [Unknown]
  - Off label use [Unknown]
  - International normalised ratio increased [Unknown]
  - Diabetes mellitus [Unknown]
  - Pain [Unknown]
